FAERS Safety Report 9704707 (Version 2)
Quarter: 2013Q4

REPORT INFORMATION
  Report Type: Report from Study
  Country: US (occurrence: US)
  Receive Date: 20131122
  Receipt Date: 20131122
  Transmission Date: 20140711
  Serious: Yes (Hospitalization)
  Sender: FDA-Public Use
  Company Number: US-CELGENEUS-163-C4047-13094049

PATIENT
  Age: 47 Year
  Sex: Male
  Weight: 96.5 kg

DRUGS (20)
  1. CC-4047 [Suspect]
     Indication: PLASMA CELL MYELOMA
     Route: 048
     Dates: start: 20130917, end: 20130923
  2. CC-4047 [Suspect]
     Route: 065
     Dates: start: 20130930
  3. BORTEZOMIB [Suspect]
     Indication: PLASMA CELL MYELOMA
     Route: 065
     Dates: start: 20130917, end: 20130923
  4. BORTEZOMIB [Suspect]
     Route: 041
     Dates: start: 20130930
  5. DEXAMETHASONE [Suspect]
     Indication: PLASMA CELL MYELOMA
     Route: 065
     Dates: start: 20130917, end: 20130923
  6. DEXAMETHASONE [Suspect]
     Route: 065
     Dates: start: 20130930
  7. ATIVAN [Concomitant]
     Indication: PRODUCT USED FOR UNKNOWN INDICATION
     Route: 041
     Dates: start: 20130922
  8. SODIUM CHLORIDE [Concomitant]
     Indication: PRODUCT USED FOR UNKNOWN INDICATION
     Dosage: 999 ML/HR
     Route: 041
     Dates: start: 20130922
  9. ACYCLOVIR [Concomitant]
     Indication: PRODUCT USED FOR UNKNOWN INDICATION
     Dosage: 800 MILLIGRAM
     Route: 048
  10. MOTRIN [Concomitant]
     Indication: PRODUCT USED FOR UNKNOWN INDICATION
     Dosage: 2-4 TABLETS
     Route: 048
  11. MOTRIN [Concomitant]
     Route: 048
  12. PROCHLORPERAZINE [Concomitant]
     Indication: PRODUCT USED FOR UNKNOWN INDICATION
     Dosage: 40 MILLIGRAM
     Route: 048
  13. TRAMADOL [Concomitant]
     Indication: PRODUCT USED FOR UNKNOWN INDICATION
     Dosage: 300 MILLIGRAM
     Route: 048
  14. TRIMETHOPRIM SULFAMETHOXAZOLE [Concomitant]
     Indication: PRODUCT USED FOR UNKNOWN INDICATION
     Dosage: 80-400MG
     Route: 048
  15. TYLENOL [Concomitant]
     Indication: PRODUCT USED FOR UNKNOWN INDICATION
     Dosage: 650 MILLIGRAM
     Route: 048
  16. DUONEB [Concomitant]
     Indication: WHEEZING
     Route: 055
     Dates: start: 201309
  17. ALFUZOSIN [Concomitant]
     Indication: CALCULUS URINARY
     Dosage: 10 MILLIGRAM
     Route: 048
  18. BAYER ASPIRIN [Concomitant]
     Indication: PRODUCT USED FOR UNKNOWN INDICATION
     Dosage: 325 MILLIGRAM
     Route: 048
  19. DOCUSATE SODIUM [Concomitant]
     Indication: PRODUCT USED FOR UNKNOWN INDICATION
     Dosage: 200 MILLIGRAM
     Route: 048
  20. OXYCODONE-ACETAMINOPHEN [Concomitant]
     Indication: PAIN
     Dosage: 5-325MG/1-2 TABLETS
     Route: 048

REACTIONS (2)
  - Respiratory distress [Recovered/Resolved]
  - Bone pain [Not Recovered/Not Resolved]
